FAERS Safety Report 24155055 (Version 1)
Quarter: 2024Q3

REPORT INFORMATION
  Report Type: Report from Study
  Country: US (occurrence: US)
  Receive Date: 20240731
  Receipt Date: 20240731
  Transmission Date: 20241016
  Serious: Yes (Hospitalization)
  Sender: TAKEDA
  Company Number: US-TAKEDA-2024TUS063094

PATIENT
  Sex: Male

DRUGS (2)
  1. FRUQUINTINIB [Suspect]
     Active Substance: FRUQUINTINIB
     Indication: Colon cancer
     Dosage: 5 MILLIGRAM, QD
     Route: 048
     Dates: start: 20240506
  2. FRUQUINTINIB [Suspect]
     Active Substance: FRUQUINTINIB
     Dosage: 5 MILLIGRAM, QD
     Route: 048

REACTIONS (2)
  - Hospitalisation [Unknown]
  - Stomatitis [Unknown]
